FAERS Safety Report 4943973-0 (Version None)
Quarter: 2006Q1

REPORT INFORMATION
  Report Type: 
  Country: None (occurrence: None)
  Receive Date: 20060313
  Receipt Date: 20060313
  Transmission Date: 20060701
  Serious: No
  Sender: FDA-Public Use
  Company Number: None

PATIENT
  Age: 41 Year
  Sex: Female
  Weight: 104.3273 kg

DRUGS (1)
  1. CEFAZOLIN [Suspect]
     Indication: STAPHYLOCOCCAL INFECTION
     Dosage: 2 GM/10 ML IV DRIP
     Route: 041
     Dates: start: 20060306

REACTIONS (6)
  - ABDOMINAL PAIN [None]
  - DRUG INEFFECTIVE [None]
  - NAUSEA [None]
  - PHARMACEUTICAL PRODUCT COMPLAINT [None]
  - POOR QUALITY DRUG ADMINISTERED [None]
  - VOMITING [None]
